FAERS Safety Report 6935080-2 (Version None)
Quarter: 2010Q3

REPORT INFORMATION
  Report Type: 
  Country: None (occurrence: None)
  Receive Date: 20100822
  Receipt Date: 20100812
  Transmission Date: 20110219
  Serious: Yes (Life-Threatening, Congenital Anomaly, Other)
  Sender: FDA-Public Use
  Company Number: PHHY2010CA08578

PATIENT
  Sex: Female
  Weight: 1.1 kg

DRUGS (1)
  1. DIOVAN [Suspect]
     Indication: HYPERTENSION
     Dosage: MATERNAL DOSE
     Route: 064

REACTIONS (13)
  - ANURIA [None]
  - BRADYCARDIA FOETAL [None]
  - DELAYED FONTANELLE CLOSURE [None]
  - DRUG EXPOSURE DURING PREGNANCY [None]
  - FOETAL GROWTH RESTRICTION [None]
  - HYPOTENSION [None]
  - KIDNEY ENLARGEMENT [None]
  - POLYURIA [None]
  - POOR PERIPHERAL CIRCULATION [None]
  - PREMATURE BABY [None]
  - RENAL APLASIA [None]
  - RENAL FAILURE [None]
  - WEIGHT GAIN POOR [None]
